FAERS Safety Report 11528216 (Version 2)
Quarter: 2016Q2

REPORT INFORMATION
  Report Type: Spontaneous
  Country: US (occurrence: US)
  Receive Date: 20150921
  Receipt Date: 20160609
  Transmission Date: 20160815
  Serious: No
  Sender: FDA-Public Use
  Company Number: US-ASTRAZENECA-2015SE87423

PATIENT
  Sex: Female
  Weight: 49.9 kg

DRUGS (3)
  1. TUDORZA PRESSAIR [Suspect]
     Active Substance: ACLIDINIUM BROMIDE
     Dosage: 400 MCG 1 PUFF TWICE DAILY
     Route: 055
     Dates: start: 201508
  2. HFA RESCUE INHALER [Concomitant]
     Dosage: AS REQUIRED
     Route: 055
  3. FLUTICASONE [Concomitant]
     Active Substance: FLUTICASONE\FLUTICASONE PROPIONATE
     Route: 065

REACTIONS (5)
  - Visual acuity reduced [Unknown]
  - Device malfunction [Unknown]
  - Device issue [Unknown]
  - Device failure [Unknown]
  - Drug dose omission [Unknown]
